FAERS Safety Report 7036867-0 (Version None)
Quarter: 2010Q4

REPORT INFORMATION
  Report Type: 
  Country: None (occurrence: None)
  Receive Date: 20101011
  Receipt Date: 20100930
  Transmission Date: 20110411
  Serious: Yes (Hospitalization)
  Sender: FDA-Public Use
  Company Number: PHHO2007PL18486

PATIENT
  Sex: Female
  Weight: 14.5 kg

DRUGS (1)
  1. ELIDEL [Suspect]
     Indication: DERMATITIS ATOPIC
     Dosage: APPLIED TWICE DAILY
     Route: 061
     Dates: start: 20041019

REACTIONS (3)
  - CHRONIC TONSILLITIS [None]
  - PURULENCE [None]
  - TONSILLECTOMY [None]
